FAERS Safety Report 19918400 (Version 2)
Quarter: 2021Q4

REPORT INFORMATION
  Report Type: Report from Study
  Country: US (occurrence: US)
  Receive Date: 20211005
  Receipt Date: 20211007
  Transmission Date: 20220303
  Serious: Yes (Hospitalization)
  Sender: FDA-Public Use
  Company Number: US-ROCHE-2922595

PATIENT
  Age: 72 Year
  Sex: Male

DRUGS (5)
  1. IPILIMUMAB [Suspect]
     Active Substance: IPILIMUMAB
     Indication: Malignant melanoma
     Route: 042
     Dates: start: 20210722, end: 20210901
  2. NIVOLUMAB [Suspect]
     Active Substance: NIVOLUMAB
     Indication: Malignant melanoma
     Dosage: 01/SEP/2021 RECEIVED MOST RECENT DOSE
     Route: 042
  3. APAP [Concomitant]
     Active Substance: ACETAMINOPHEN
     Dosage: 1000 MG MORNING AND 500 MG IN EVENING
  4. DILAUDID [Concomitant]
     Active Substance: HYDROMORPHONE HYDROCHLORIDE
     Dosage: 1-2 MG
  5. TIZANIDINE [Concomitant]
     Active Substance: TIZANIDINE

REACTIONS (3)
  - Liver function test increased [Unknown]
  - Thrombocytopenia [Unknown]
  - Haemolysis [Unknown]

NARRATIVE: CASE EVENT DATE: 20210923
